FAERS Safety Report 8890484 (Version 1)
Quarter: 2012Q4

REPORT INFORMATION
  Report Type: 
  Country: US (occurrence: US)
  Receive Date: 20121107
  Receipt Date: 20121107
  Transmission Date: 20130627
  Serious: No
  Sender: FDA-Public Use
  Company Number: US-009507513-1210USA013760

PATIENT
  Age: 56 Year
  Sex: Female

DRUGS (1)
  1. VICTRELIS [Suspect]
     Indication: CHRONIC HEPATITIS C
     Dosage: 4 DF, tid
     Route: 048
     Dates: start: 20120930

REACTIONS (4)
  - Nausea [Unknown]
  - Dry skin [Unknown]
  - Dysgeusia [Unknown]
  - Pruritus [Unknown]
